FAERS Safety Report 6959887-0 (Version None)
Quarter: 2010Q3

REPORT INFORMATION
  Report Type: 
  Country: None (occurrence: None)
  Receive Date: 20100901
  Receipt Date: 20100823
  Transmission Date: 20110219
  Serious: No
  Sender: FDA-Public Use
  Company Number: 2009BI038157

PATIENT
  Age: 43 Year
  Sex: Female

DRUGS (1)
  1. TYSABRI [Suspect]
     Indication: MULTIPLE SCLEROSIS
     Route: 042
     Dates: start: 20080222

REACTIONS (4)
  - BLOOD URINE PRESENT [None]
  - FATIGUE [None]
  - INCONTINENCE [None]
  - URINARY TRACT INFECTION [None]
